FAERS Safety Report 10068473 (Version 1)
Quarter: 2014Q2

REPORT INFORMATION
  Report Type: Spontaneous
  Country: IT (occurrence: IT)
  Receive Date: 20140409
  Receipt Date: 20140409
  Transmission Date: 20141212
  Serious: Yes (Hospitalization)
  Sender: FDA-Public Use
  Company Number: IT-ASTRAZENECA-2014SE23079

PATIENT
  Age: 28007 Day
  Sex: Male

DRUGS (7)
  1. BRILIQUE [Suspect]
     Indication: CORONARY ANGIOPLASTY
     Route: 048
     Dates: start: 20140216, end: 20140313
  2. CARDIOASPIRIN [Suspect]
     Indication: CORONARY ANGIOPLASTY
     Route: 048
     Dates: start: 20140216, end: 20140313
  3. METOPROLOL [Concomitant]
     Indication: MYOCARDIAL ISCHAEMIA
  4. PANTORC [Concomitant]
     Route: 048
  5. LANTUS [Concomitant]
     Indication: DIABETES MELLITUS
     Dosage: 100U/I
  6. APIDRA [Concomitant]
     Indication: DIABETES MELLITUS
     Dosage: 100U/ML
     Route: 065
  7. LASIX [Concomitant]
     Indication: MYOCARDIAL ISCHAEMIA

REACTIONS (2)
  - Anaemia [Recovering/Resolving]
  - Anastomotic ulcer haemorrhage [Recovering/Resolving]
